FAERS Safety Report 25915794 (Version 2)
Quarter: 2025Q4

REPORT INFORMATION
  Report Type: Report from Study
  Country: US (occurrence: US)
  Receive Date: 20251013
  Receipt Date: 20251119
  Transmission Date: 20260117
  Serious: No
  Sender: MERCK SHARP & DOHME LLC
  Company Number: US-009507513-2336814

PATIENT
  Sex: Female
  Weight: 55.3 kg

DRUGS (18)
  1. WINREVAIR [Suspect]
     Active Substance: SOTATERCEPT-CSRK
     Indication: Pulmonary arterial hypertension
     Dosage: 0.7ML / EVERY 3 WEEKS
     Route: 058
     Dates: start: 202509
  2. WINREVAIR [Suspect]
     Active Substance: SOTATERCEPT-CSRK
  3. WINREVAIR [Suspect]
     Active Substance: SOTATERCEPT-CSRK
  4. WINREVAIR [Suspect]
     Active Substance: SOTATERCEPT-CSRK
  5. REMODULIN [Suspect]
     Active Substance: TREPROSTINIL
     Indication: Pulmonary arterial hypertension
     Dosage: STRENGTH: 2.5 MG/ML; 0.01206 ?G/KG, CONTINUING
     Route: 058
     Dates: start: 2025
  6. REMODULIN [Suspect]
     Active Substance: TREPROSTINIL
     Indication: Pulmonary arterial hypertension
     Dosage: STRENGTH: 2.5 MG/ML; 0.02546 ?G/KG, CONTINUING
     Route: 058
     Dates: start: 2025
  7. REMODULIN [Suspect]
     Active Substance: TREPROSTINIL
     Indication: Pulmonary arterial hypertension
     Dosage: STRENGTH: 2.5 MG/ML; 0.0134 ?G/KG, CONTINUING
     Route: 058
     Dates: start: 2025
  8. REMODULIN [Suspect]
     Active Substance: TREPROSTINIL
     Indication: Pulmonary arterial hypertension
     Dosage: STRENGTH: 2.5 MG/ML; 0.01474 ?G/KG, CONTINUING
     Route: 058
     Dates: start: 2025
  9. REMODULIN [Suspect]
     Active Substance: TREPROSTINIL
     Indication: Pulmonary arterial hypertension
     Dosage: STRENGTH: 2.5 MG/ML; UNKNOWN DOSE, CONTINUING
     Route: 058
     Dates: start: 2025
  10. REMODULIN [Suspect]
     Active Substance: TREPROSTINIL
     Indication: Pulmonary arterial hypertension
     Dosage: STRENGTH: 2.5 MG/ML; 0.01742 ?G/KG, CONTINUING
     Route: 058
     Dates: start: 2025
  11. REMODULIN [Suspect]
     Active Substance: TREPROSTINIL
     Indication: Pulmonary arterial hypertension
     Dosage: STRENGTH: 2.5 MG/ML;0.01876 ?G/KG, CONTINUING
     Route: 058
     Dates: start: 2025
  12. REMODULIN [Suspect]
     Active Substance: TREPROSTINIL
     Indication: Pulmonary arterial hypertension
     Dosage: STRENGTH: 2.5 MG/ML;0.02010 ?G/KG, CONTINUING
     Route: 058
     Dates: start: 2025
  13. REMODULIN [Suspect]
     Active Substance: TREPROSTINIL
     Indication: Pulmonary arterial hypertension
     Dosage: STRENGTH: 2.5 MG/ML; 0.02278 ?G/KG, CONTINUING
     Route: 058
     Dates: start: 2025
  14. REMODULIN [Suspect]
     Active Substance: TREPROSTINIL
     Indication: Pulmonary arterial hypertension
     Dosage: STRENGTH: 2.5 MG/ML; UNKNOWN DOSE, CONTINUING
     Route: 058
     Dates: start: 2025
  15. TYLENOL [Concomitant]
     Active Substance: ACETAMINOPHEN
  16. TRIAMCINOLONE ACETONIDE [Concomitant]
     Active Substance: TRIAMCINOLONE ACETONIDE
  17. LIDOCAINE\PRILOCAINE [Concomitant]
     Active Substance: LIDOCAINE\PRILOCAINE
  18. IMODIUM [Concomitant]
     Active Substance: LOPERAMIDE HYDROCHLORIDE

REACTIONS (5)
  - Diarrhoea [Unknown]
  - Pruritus [Not Recovered/Not Resolved]
  - Product preparation issue [Unknown]
  - Product dose omission issue [Unknown]
  - Syringe issue [Unknown]

NARRATIVE: CASE EVENT DATE: 20250101
